FAERS Safety Report 9325292 (Version 1)
Quarter: 2013Q2

REPORT INFORMATION
  Report Type: Spontaneous
  Country: US (occurrence: US)
  Receive Date: 20130604
  Receipt Date: 20130604
  Transmission Date: 20140414
  Serious: No
  Sender: FDA-Public Use
  Company Number: US-BIOGENIDEC-2013BI047028

PATIENT
  Sex: Female

DRUGS (2)
  1. AVONEX [Suspect]
     Indication: MULTIPLE SCLEROSIS
     Route: 030
     Dates: start: 20121228, end: 20130118
  2. EXTAVIA [Concomitant]
     Indication: MULTIPLE SCLEROSIS
     Dates: start: 2013

REACTIONS (1)
  - Sensory disturbance [Not Recovered/Not Resolved]
